FAERS Safety Report 8174961-1 (Version None)
Quarter: 2012Q1

REPORT INFORMATION
  Report Type: 
  Country: None (occurrence: None)
  Receive Date: 20120229
  Receipt Date: 20111209
  Transmission Date: 20120608
  Serious: No
  Sender: FDA-Public Use
  Company Number: US-GLAXOSMITHKLINE-A0958029A

PATIENT
  Sex: Female

DRUGS (2)
  1. IRON [Suspect]
     Indication: ANAEMIA
     Route: 065
  2. VALTREX [Suspect]
     Indication: HERPES VIRUS INFECTION
     Dosage: 1000MG PER DAY
     Route: 065

REACTIONS (2)
  - HERPES VIRUS INFECTION [None]
  - DRUG INTERACTION [None]
